FAERS Safety Report 12871217 (Version 1)
Quarter: 2016Q4

REPORT INFORMATION
  Report Type: Spontaneous
  Country: US (occurrence: US)
  Receive Date: 20161021
  Receipt Date: 20161021
  Transmission Date: 20170207
  Serious: Yes (Other)
  Sender: FDA-Public Use
  Company Number: US-PURDUE PHARMA-USA-2016-0130753

PATIENT
  Sex: Male

DRUGS (1)
  1. OXYCONTIN [Suspect]
     Active Substance: OXYCODONE HYDROCHLORIDE
     Indication: BACK INJURY
     Dosage: UNK
     Route: 048
     Dates: start: 2001

REACTIONS (8)
  - Muscle spasms [Unknown]
  - Myalgia [Unknown]
  - Drug effect decreased [Unknown]
  - Nausea [Unknown]
  - Chills [Unknown]
  - Drug dependence [Recovering/Resolving]
  - Drug withdrawal syndrome [Unknown]
  - Extra dose administered [Unknown]
